FAERS Safety Report 9412150 (Version 1)
Quarter: 2013Q3

REPORT INFORMATION
  Report Type: Spontaneous
  Country: TR (occurrence: TR)
  Receive Date: 20130722
  Receipt Date: 20130722
  Transmission Date: 20140515
  Serious: Yes (Hospitalization, Other)
  Sender: FDA-Public Use
  Company Number: TR-NOVOPROD-383106

PATIENT
  Age: 60 Day
  Sex: Male
  Weight: 3 kg

DRUGS (2)
  1. LEVEMIR FLEXPEN [Suspect]
     Indication: GESTATIONAL DIABETES
     Dosage: 8 U, QD
     Route: 064
     Dates: start: 20130408, end: 20130510
  2. ELEVIT                             /01730301/ [Concomitant]
     Dosage: 1 TAB, QD
     Route: 064
     Dates: start: 201302

REACTIONS (3)
  - Foetal distress syndrome [Recovered/Resolved]
  - Premature baby [Unknown]
  - Foetal exposure during pregnancy [Unknown]
